FAERS Safety Report 7203389-3 (Version None)
Quarter: 2010Q4

REPORT INFORMATION
  Report Type: 
  Country: None (occurrence: None)
  Receive Date: 20101230
  Receipt Date: 20101221
  Transmission Date: 20110411
  Serious: Yes (Death, Congenital Anomaly)
  Sender: FDA-Public Use
  Company Number: US-JNJFOC-20101208612

PATIENT

DRUGS (6)
  1. ACETAMINOPHEN [Suspect]
  2. ACETAMINOPHEN [Suspect]
     Indication: DRUG EXPOSURE DURING PREGNANCY
  3. ASPIRIN [Suspect]
     Indication: DRUG EXPOSURE DURING PREGNANCY
  4. CAFFEINE [Suspect]
     Indication: DRUG EXPOSURE DURING PREGNANCY
  5. QUININE [Suspect]
     Indication: DRUG EXPOSURE DURING PREGNANCY
  6. METHIONINE [Suspect]
     Indication: DRUG EXPOSURE DURING PREGNANCY

REACTIONS (4)
  - DEATH OF RELATIVE [None]
  - NEONATAL EXCHANGE BLOOD TRANSFUSION [None]
  - NEONATAL RESPIRATORY DISTRESS SYNDROME [None]
  - PREMATURE BABY [None]
